FAERS Safety Report 17716171 (Version 3)
Quarter: 2020Q2

REPORT INFORMATION
  Report Type: Spontaneous
  Country: US (occurrence: US)
  Receive Date: 20200428
  Receipt Date: 20200615
  Transmission Date: 20200714
  Serious: No
  Sender: FDA-Public Use
  Company Number: US-GLAXOSMITHKLINE-US2020AMR069785

PATIENT
  Sex: Female

DRUGS (3)
  1. ZEJULA [Suspect]
     Active Substance: NIRAPARIB
     Dosage: 300 MG, ONCE DAILY
  2. ZEJULA [Suspect]
     Active Substance: NIRAPARIB
     Indication: FALLOPIAN TUBE CANCER
     Dosage: 100 MG, QD
     Dates: start: 20200415
  3. ZEJULA [Suspect]
     Active Substance: NIRAPARIB
     Dosage: 200 MG, QD

REACTIONS (11)
  - Palpitations [Unknown]
  - Depression [Unknown]
  - Tinnitus [Unknown]
  - Depressed mood [Unknown]
  - Dyspnoea [Unknown]
  - Diarrhoea [Unknown]
  - Arthralgia [Unknown]
  - Nausea [Unknown]
  - Off label use [Unknown]
  - Headache [Unknown]
  - Hypertension [Unknown]
